FAERS Safety Report 16015714 (Version 2)
Quarter: 2019Q2

REPORT INFORMATION
  Report Type: Spontaneous
  Country: US (occurrence: US)
  Receive Date: 20190228
  Receipt Date: 20190607
  Transmission Date: 20190711
  Serious: Yes (Other)
  Sender: FDA-Public Use
  Company Number: US-HIKMA PHARMACEUTICALS USA INC.-US-H14001-19-01223

PATIENT
  Age: 42 Year
  Sex: Male

DRUGS (13)
  1. KETOROLAC [Concomitant]
     Active Substance: KETOROLAC\KETOROLAC TROMETHAMINE
     Indication: ABDOMINAL PAIN
     Route: 042
  2. OCTREOTIDE. [Concomitant]
     Active Substance: OCTREOTIDE
     Indication: SPLENIC VEIN OCCLUSION
     Dosage: 30 MICROG/H
     Route: 041
  3. PROPOFOL. [Concomitant]
     Active Substance: PROPOFOL
     Indication: PRODUCT USED FOR UNKNOWN INDICATION
     Dosage: 30 MICROG/KG/MIN
     Route: 041
  4. MORPHINE [Concomitant]
     Active Substance: MORPHINE
     Indication: HYPOTENSION
     Route: 065
  5. OXYCODONE [Concomitant]
     Active Substance: OXYCODONE
     Indication: ABDOMINAL PAIN
     Route: 065
  6. HYDROMORPHONE [Concomitant]
     Active Substance: HYDROMORPHONE
     Dosage: 0.6 MG (WITH A TEN-MINUTE LOCKOUT) AND A CONTINUOUS INFUSION OF 0.3 MG/H
     Route: 041
  7. PANTOPRAZOLE [Concomitant]
     Active Substance: PANTOPRAZOLE
     Indication: SPLENIC VEIN OCCLUSION
     Route: 065
  8. FENTANYL. [Concomitant]
     Active Substance: FENTANYL
     Indication: ABDOMINAL PAIN
     Dosage: 75 MICROG/H
     Route: 062
  9. FENTANYL. [Concomitant]
     Active Substance: FENTANYL
     Dosage: 250 MICROG/H
     Route: 041
  10. HYDROMORPHONE [Concomitant]
     Active Substance: HYDROMORPHONE
     Indication: ABDOMINAL PAIN
     Route: 042
  11. HYDROMORPHONE [Concomitant]
     Active Substance: HYDROMORPHONE
     Dosage: 0.5 MG (WITH A 12-MINUTE LOCKOUT), AND A CONTINUOUS INFUSION OF 0.1 MG/H
     Route: 065
  12. KETAMINE [Suspect]
     Active Substance: KETAMINE
     Indication: PAIN
     Dosage: 1 MG/KG FOLLOWED BY A CONTINUOUS INFUSION OF 0.12 MG/KG/H (10 MG/H)
     Route: 042
  13. ACETAMINOPHEN. [Concomitant]
     Active Substance: ACETAMINOPHEN
     Indication: ABDOMINAL PAIN
     Route: 048

REACTIONS (1)
  - Diabetes insipidus [Recovered/Resolved]
